FAERS Safety Report 13163207 (Version 1)
Quarter: 2017Q1

REPORT INFORMATION
  Report Type: Spontaneous
  Country: US (occurrence: US)
  Receive Date: 20170129
  Receipt Date: 20170129
  Transmission Date: 20170428
  Serious: Yes (Life-Threatening, Hospitalization)
  Sender: FDA-Public Use
  Company Number: None

PATIENT
  Age: 59 Year
  Sex: Female
  Weight: 49.5 kg

DRUGS (9)
  1. VALERIAN ROOT [Concomitant]
     Active Substance: VALERIAN
  2. PREDNISONE 10 MG TABLET [Suspect]
     Active Substance: PREDNISONE
     Indication: DYSPNOEA
     Dosage: ?          QUANTITY:11 TABLET(S);OTHER FREQUENCY:DAYS 1 DAY 6 TAB,;?
     Route: 048
     Dates: start: 20170125, end: 20170126
  3. VITAMINS AND MINERALS [Concomitant]
  4. FISH OIL [Concomitant]
     Active Substance: FISH OIL
  5. ALBUTEROL SULFATE GLAXOSMITHKLINE [Suspect]
     Active Substance: ALBUTEROL SULFATE
     Indication: DYSPNOEA
     Dosage: ?          OTHER FREQUENCY:EVERY 4 TO 6 HOURS;?
     Route: 055
     Dates: start: 20170125, end: 20170126
  6. CEFUROXIM 500 MG [Suspect]
     Active Substance: CEFUROXIME SODIUM
  7. DOXYCYCLINE MONOHYDRATE 100 MG [Suspect]
     Active Substance: DOXYCYCLINE
  8. ALBUTEROL SULFATE GLAXOSMITHKLINE [Suspect]
     Active Substance: ALBUTEROL SULFATE
     Indication: WHEEZING
     Dosage: ?          OTHER FREQUENCY:EVERY 4 TO 6 HOURS;?
     Route: 055
     Dates: start: 20170125, end: 20170126
  9. PREDNISONE 10 MG TABLET [Suspect]
     Active Substance: PREDNISONE
     Indication: WHEEZING
     Dosage: ?          QUANTITY:11 TABLET(S);OTHER FREQUENCY:DAYS 1 DAY 6 TAB,;?
     Route: 048
     Dates: start: 20170125, end: 20170126

REACTIONS (2)
  - Condition aggravated [None]
  - Dyspnoea [None]

NARRATIVE: CASE EVENT DATE: 20170127
